FAERS Safety Report 17760002 (Version 1)
Quarter: 2020Q2

REPORT INFORMATION
  Report Type: Spontaneous
  Country: GB (occurrence: GB)
  Receive Date: 20200508
  Receipt Date: 20200508
  Transmission Date: 20200714
  Serious: Yes (Death, Other)
  Sender: FDA-Public Use
  Company Number: GB-TEVA-2020-GB-1231571

PATIENT
  Age: 70 Year
  Sex: Male
  Weight: 70 kg

DRUGS (9)
  1. TRAMADOL HYDROCHLORIDE. [Concomitant]
     Active Substance: TRAMADOL HYDROCHLORIDE
     Indication: ALLODYNIA
     Dosage: UNK UNK, AS NEEDED
     Dates: start: 2007, end: 201904
  2. VERSATIS 700 MG MEDICATED PLASTER [Interacting]
     Active Substance: LIDOCAINE
     Indication: ALLODYNIA
     Dosage: 1 DOSAGE FORMS DAILY;
     Route: 061
     Dates: start: 20190423, end: 20190530
  3. ASPIRIN [ACETYLSALICYLIC ACID] [Concomitant]
     Active Substance: ASPIRIN
     Indication: PRODUCT USED FOR UNKNOWN INDICATION
     Dosage: 75 MILLIGRAM,THERAPY START DATE: NOT ASKED,THERAPY END DATE: NOT ASKED
     Route: 048
  4. TRAMADOL HYDROCHLORIDE. [Suspect]
     Active Substance: TRAMADOL HYDROCHLORIDE
     Indication: ALLODYNIA
     Dosage: UNK UNK, AS NEEDED
     Route: 065
     Dates: start: 201904, end: 20190530
  5. RALVO 700 MG MEDICATED PLASTER [Concomitant]
     Indication: ALLODYNIA
     Dosage: 1 DOSAGE FORMS DAILY;
  6. ALCOHOL. [Interacting]
     Active Substance: ALCOHOL
     Indication: PRODUCT USED FOR UNKNOWN INDICATION
     Dosage: UNK,THERAPY START DATE: NOT ASKED
     Route: 065
     Dates: end: 20190530
  7. LOSARTAN. [Concomitant]
     Active Substance: LOSARTAN
     Indication: PRODUCT USED FOR UNKNOWN INDICATION
     Dosage: 100 MILLIGRAM,THERAPY START DATE: NOT ASKED,THERAPY END DATE: NOT ASKED
     Route: 048
  8. ATENOLOL. [Concomitant]
     Active Substance: ATENOLOL
     Indication: PRODUCT USED FOR UNKNOWN INDICATION
     Dosage: 100 MILLIGRAM,THERAPY START DATE: NOT ASKED, THERAPY END DATE: NOT ASKED,
     Route: 048
  9. SIMVASTATIN. [Concomitant]
     Active Substance: SIMVASTATIN
     Indication: PRODUCT USED FOR UNKNOWN INDICATION
     Dosage: 40 MILLIGRAM,THERAPY START DATE: NOT ASKED, THERAPY END DATE: NOT ASKED,
     Route: 048

REACTIONS (8)
  - Overdose [Fatal]
  - Depression [Fatal]
  - Asphyxia [Fatal]
  - Completed suicide [Fatal]
  - Off label use [Not Recovered/Not Resolved]
  - Drug interaction [Fatal]
  - Toxicity to various agents [Fatal]
  - Product use in unapproved indication [Not Recovered/Not Resolved]

NARRATIVE: CASE EVENT DATE: 20190423
